FAERS Safety Report 6551582-5 (Version None)
Quarter: 2010Q1

REPORT INFORMATION
  Report Type: 
  Country: None (occurrence: None)
  Receive Date: 20100126
  Receipt Date: 20100115
  Transmission Date: 20100710
  Serious: Yes (Other)
  Sender: FDA-Public Use
  Company Number: US-JNJFOC-20100106818

PATIENT
  Sex: Male

DRUGS (3)
  1. REMICADE [Suspect]
     Indication: COLITIS ULCERATIVE
     Route: 042
  2. REMICADE [Suspect]
     Route: 042
  3. HUMIRA [Suspect]
     Indication: DRUG USE FOR UNKNOWN INDICATION
     Route: 065

REACTIONS (3)
  - HYPERSENSITIVITY [None]
  - LUNG NEOPLASM [None]
  - PSORIASIS [None]
